FAERS Safety Report 21392225 (Version 2)
Quarter: 2022Q3

REPORT INFORMATION
  Report Type: Spontaneous
  Country: US (occurrence: US)
  Receive Date: 20220929
  Receipt Date: 20220929
  Transmission Date: 20221027
  Serious: No
  Sender: FDA-Public Use
  Company Number: US-AMGEN-USASP2022166660

PATIENT
  Age: 79 Year
  Sex: Female

DRUGS (1)
  1. IMLYGIC [Suspect]
     Active Substance: TALIMOGENE LAHERPAREPVEC
     Indication: Malignant melanoma
     Dosage: UNK UNK, ONE TIME DOSE UNK UNK, QD (10^6 (1 MILLION) PFU PER ML)
     Route: 026
     Dates: start: 20220912, end: 20220926

REACTIONS (1)
  - Herpes virus infection [Recovering/Resolving]

NARRATIVE: CASE EVENT DATE: 20220901
